FAERS Safety Report 24991997 (Version 1)
Quarter: 2025Q1

REPORT INFORMATION
  Report Type: Spontaneous
  Country: FR (occurrence: FR)
  Receive Date: 20250220
  Receipt Date: 20250220
  Transmission Date: 20250409
  Serious: Yes (Hospitalization)
  Sender: AIRGAS
  Company Number: FR-AFSSAPS-AVCF2025000062

PATIENT
  Age: 17 Year
  Sex: Male

DRUGS (1)
  1. NITROUS OXIDE [Suspect]
     Active Substance: NITROUS OXIDE
     Indication: Product used for unknown indication
     Dates: start: 20241221

REACTIONS (2)
  - Delusional disorder, unspecified type [Unknown]
  - Agitation [Unknown]

NARRATIVE: CASE EVENT DATE: 20241225
